FAERS Safety Report 7813008-0 (Version None)
Quarter: 2011Q4

REPORT INFORMATION
  Report Type: 
  Country: None (occurrence: None)
  Receive Date: 20111013
  Receipt Date: 20110928
  Transmission Date: 20120403
  Serious: Yes (Other)
  Sender: FDA-Public Use
  Company Number: DE-ROCHE-1000609

PATIENT

DRUGS (3)
  1. AVASTIN [Suspect]
     Indication: DETACHMENT OF RETINAL PIGMENT EPITHELIUM
     Dosage: 1.25 MG/ 0.05 ML
     Route: 050
  2. RANIBIZUMAB [Suspect]
     Indication: DETACHMENT OF RETINAL PIGMENT EPITHELIUM
     Dosage: 0.5 MG/ 0.05 ML
     Route: 050
  3. PEGAPTANIB [Suspect]
     Indication: DETACHMENT OF RETINAL PIGMENT EPITHELIUM
     Dosage: 0.3 MG/ 0.09 ML
     Route: 050

REACTIONS (2)
  - RETINAL PIGMENT EPITHELIAL TEAR [None]
  - BLINDNESS [None]
